FAERS Safety Report 23826549 (Version 1)
Quarter: 2024Q2

REPORT INFORMATION
  Report Type: Spontaneous
  Country: US (occurrence: US)
  Receive Date: 20240507
  Receipt Date: 20240507
  Transmission Date: 20240715
  Serious: No
  Sender: FDA-Public Use
  Company Number: US-UCBSA-2024004660

PATIENT
  Age: 56 Year
  Sex: Male

DRUGS (2)
  1. CIMZIA [Suspect]
     Active Substance: CERTOLIZUMAB PEGOL
     Indication: Spondylitis
     Dosage: 300 MILLIGRAM,OTHER FREQUENCY
     Route: 058
     Dates: start: 20200701, end: 20210929
  2. CIMZIA [Suspect]
     Active Substance: CERTOLIZUMAB PEGOL
     Indication: Off label use

REACTIONS (2)
  - Spondylitis [Unknown]
  - Off label use [Unknown]

NARRATIVE: CASE EVENT DATE: 20200701
